FAERS Safety Report 5042586-2 (Version None)
Quarter: 2006Q3

REPORT INFORMATION
  Report Type: 
  Country: None (occurrence: None)
  Receive Date: 20060705
  Receipt Date: 20060622
  Transmission Date: 20061208
  Serious: Yes (Other)
  Sender: FDA-Public Use
  Company Number: PHFR2006GB02064

PATIENT
  Age: 50 Year
  Sex: Male

DRUGS (1)
  1. LUDIOMIL [Suspect]
     Indication: DEPRESSION
     Dosage: 50 MG, QD
     Route: 048

REACTIONS (5)
  - ANAPHYLACTIC REACTION [None]
  - HYPOTENSION [None]
  - SYNCOPE [None]
  - TEMPERATURE INTOLERANCE [None]
  - URTICARIA [None]
